FAERS Safety Report 6531870-9 (Version None)
Quarter: 2010Q1

REPORT INFORMATION
  Report Type: 
  Country: None (occurrence: None)
  Receive Date: 20100108
  Receipt Date: 20100104
  Transmission Date: 20100710
  Serious: Yes (Hospitalization)
  Sender: FDA-Public Use
  Company Number: PE-MEDIMMUNE-MEDI-0009987

PATIENT
  Sex: Female
  Weight: 1.94 kg

DRUGS (1)
  1. SYNAGIS [Suspect]
     Route: 030
     Dates: start: 20091016

REACTIONS (8)
  - ANAEMIA [None]
  - APNOEA [None]
  - COUGH [None]
  - DECREASED ACTIVITY [None]
  - DYSPNOEA [None]
  - HYPOPHAGIA [None]
  - PYREXIA [None]
  - SNEEZING [None]
